FAERS Safety Report 4277998-8 (Version None)
Quarter: 2004Q1

REPORT INFORMATION
  Report Type: 
  Country: None (occurrence: None)
  Receive Date: 20040121
  Receipt Date: 20040108
  Transmission Date: 20041129
  Serious: No
  Sender: FDA-Public Use
  Company Number: A01200400077

PATIENT
  Age: 24 Year
  Sex: Female

DRUGS (1)
  1. ZOLPIDEM TARTRATE [Suspect]
     Dosage: INTRA-ARTERIAL

REACTIONS (3)
  - GANGRENE [None]
  - INTENTIONAL MISUSE [None]
  - PERIPHERAL ISCHAEMIA [None]
